FAERS Safety Report 8122005-X (Version None)
Quarter: 2012Q1

REPORT INFORMATION
  Report Type: 
  Country: None (occurrence: None)
  Receive Date: 20120207
  Receipt Date: 20120207
  Transmission Date: 20120608
  Serious: Yes (Life-Threatening, Hospitalization)
  Sender: FDA-Public Use
  Company Number: None

PATIENT
  Age: 65 Year
  Sex: Male
  Weight: 89.6 kg

DRUGS (2)
  1. VANCOMYCIN [Suspect]
     Dosage: 1400 MG EVERY DAY IV
     Route: 042
     Dates: start: 20091221, end: 20091222
  2. COLISTIMETHATE [Suspect]
     Dosage: 150 MG BID IV
     Route: 042
     Dates: start: 20091224, end: 20091227

REACTIONS (3)
  - NEPHROPATHY TOXIC [None]
  - RENAL FAILURE ACUTE [None]
  - DIALYSIS [None]
